FAERS Safety Report 5360507-X (Version None)
Quarter: 2007Q2

REPORT INFORMATION
  Report Type: 
  Country: None (occurrence: None)
  Receive Date: 20070618
  Receipt Date: 20070608
  Transmission Date: 20071010
  Serious: Yes (Life-Threatening)
  Sender: FDA-Public Use
  Company Number: B0474380A

PATIENT
  Age: 20 Day
  Sex: Male
  Weight: 3.4 kg

DRUGS (1)
  1. RETROVIR [Suspect]
     Route: 048

REACTIONS (3)
  - ANAEMIA [None]
  - BLOOD LACTIC ACID INCREASED [None]
  - PALLOR [None]
